FAERS Safety Report 5745030-2 (Version None)
Quarter: 2008Q2

REPORT INFORMATION
  Report Type: 
  Country: None (occurrence: None)
  Receive Date: 20080521
  Receipt Date: 20080512
  Transmission Date: 20081010
  Serious: Yes (Hospitalization, Other)
  Sender: FDA-Public Use
  Company Number: PHHY2008BR08125

PATIENT
  Age: 65 Year
  Sex: Male
  Weight: 67 kg

DRUGS (3)
  1. FORASEQ [Suspect]
     Indication: EMPHYSEMA
     Dosage: 1 DF, BID
     Dates: start: 20060301
  2. OXYGEN [Concomitant]
     Dosage: 16 HOURS/DAY
  3. DIAZEPAM [Concomitant]
     Indication: DEPRESSION
     Dosage: 1/4 TABLET/DAY
     Route: 048

REACTIONS (5)
  - DYSPNOEA [None]
  - FATIGUE [None]
  - INFLUENZA [None]
  - LUNG INFECTION [None]
  - NASOPHARYNGITIS [None]
